FAERS Safety Report 8198757-X (Version None)
Quarter: 2012Q1

REPORT INFORMATION
  Report Type: 
  Country: None (occurrence: None)
  Receive Date: 20120309
  Receipt Date: 20120203
  Transmission Date: 20120608
  Serious: No
  Sender: FDA-Public Use
  Company Number: US-AMGEN-USASP2011037387

PATIENT
  Age: 57 Year
  Sex: Female

DRUGS (4)
  1. PROLIA [Suspect]
     Indication: OSTEOPOROSIS POSTMENOPAUSAL
     Dosage: 60 MG, Q6MO
     Dates: start: 20110120
  2. KLONOPIN [Concomitant]
  3. ANTIDEPRESSANTS [Concomitant]
     Dosage: UNK
  4. ZYPREXA [Concomitant]

REACTIONS (5)
  - TREMOR [None]
  - BLOOD PRESSURE DECREASED [None]
  - ANXIETY [None]
  - MENTAL IMPAIRMENT [None]
  - DIZZINESS [None]
